FAERS Safety Report 11849084 (Version 1)
Quarter: 2015Q4

REPORT INFORMATION
  Report Type: Spontaneous
  Country: US (occurrence: US)
  Receive Date: 20151218
  Receipt Date: 20151218
  Transmission Date: 20160305
  Serious: Yes (Other)
  Sender: FDA-Public Use
  Company Number: US-FRESENIUS KABI-FK201506563

PATIENT
  Age: 23 Year
  Sex: Female

DRUGS (2)
  1. MOXIFLOXACIN (MANUFACTURER UNKNOWN) [Suspect]
     Active Substance: MOXIFLOXACIN
     Indication: PYREXIA
     Route: 065
  2. MOXIFLOXACIN (MANUFACTURER UNKNOWN) [Suspect]
     Active Substance: MOXIFLOXACIN
     Indication: OROPHARYNGEAL PAIN

REACTIONS (15)
  - Myalgia [Unknown]
  - Ulcerative keratitis [Unknown]
  - Fatigue [Unknown]
  - Weight decreased [Unknown]
  - Micturition urgency [Unknown]
  - Seizure [Unknown]
  - Muscle disorder [Unknown]
  - Arthralgia [Unknown]
  - Gastric disorder [Unknown]
  - Autonomic nervous system imbalance [Unknown]
  - Sensory disturbance [Unknown]
  - Insomnia [Unknown]
  - Tendonitis [Unknown]
  - Dyspnoea [Unknown]
  - Alopecia [Unknown]
